FAERS Safety Report 20815555 (Version 1)
Quarter: 2022Q2

REPORT INFORMATION
  Report Type: Spontaneous
  Country: US (occurrence: None)
  Receive Date: 20220511
  Receipt Date: 20220511
  Transmission Date: 20220720
  Serious: No
  Sender: FDA-Public Use
  Company Number: 2022A149597

PATIENT
  Age: 1007 Month
  Sex: Male
  Weight: 102.1 kg

DRUGS (2)
  1. BUDESONIDE\FORMOTEROL\GLYCOPYRRONIUM [Suspect]
     Active Substance: BUDESONIDE\FORMOTEROL\GLYCOPYRRONIUM
     Indication: Chronic obstructive pulmonary disease
     Dosage: 2 INHALATIONS, TWO TIMES A DAY
     Route: 055
     Dates: start: 202204, end: 202204
  2. ALBUTEROL [Concomitant]
     Active Substance: ALBUTEROL
     Route: 065

REACTIONS (3)
  - Joint swelling [Recovering/Resolving]
  - Anxiety [Recovering/Resolving]
  - Insomnia [Recovered/Resolved]

NARRATIVE: CASE EVENT DATE: 20220401
